FAERS Safety Report 13986543 (Version 4)
Quarter: 2017Q4

REPORT INFORMATION
  Report Type: Report from Study
  Country: CA (occurrence: CA)
  Receive Date: 20170919
  Receipt Date: 20171227
  Transmission Date: 20180321
  Serious: Yes (Hospitalization, Other)
  Sender: FDA-Public Use
  Company Number: CA-BRISTOL-MYERS SQUIBB COMPANY-BMS-2017-035935

PATIENT
  Age: 66 Year
  Sex: Male

DRUGS (8)
  1. HCTZ [Concomitant]
     Active Substance: HYDROCHLOROTHIAZIDE
     Indication: PRODUCT USED FOR UNKNOWN INDICATION
     Dosage: UNK
     Route: 065
  2. ABATACEPT [Suspect]
     Active Substance: ABATACEPT
     Indication: PRODUCT USED FOR UNKNOWN INDICATION
     Dosage: UNK
     Route: 065
     Dates: start: 20170223
  3. ZOPICLONE [Concomitant]
     Active Substance: ZOPICLONE
     Indication: PRODUCT USED FOR UNKNOWN INDICATION
     Dosage: UNK
     Route: 065
  4. LASIX [Concomitant]
     Active Substance: FUROSEMIDE
     Indication: PRODUCT USED FOR UNKNOWN INDICATION
     Dosage: UNK
     Route: 065
  5. SPIRONOLACTONE. [Concomitant]
     Active Substance: SPIRONOLACTONE
     Indication: PRODUCT USED FOR UNKNOWN INDICATION
     Dosage: UNK
     Route: 065
  6. SYNTHROID [Concomitant]
     Active Substance: LEVOTHYROXINE SODIUM
     Indication: PRODUCT USED FOR UNKNOWN INDICATION
     Dosage: UNK
     Route: 065
  7. TELMISARTAN. [Concomitant]
     Active Substance: TELMISARTAN
     Indication: PRODUCT USED FOR UNKNOWN INDICATION
     Dosage: UNK
     Route: 065
  8. ABATACEPT [Suspect]
     Active Substance: ABATACEPT
     Indication: RHEUMATOID ARTHRITIS
     Dosage: 1000 MG, Q4WK
     Route: 042
     Dates: start: 20121106

REACTIONS (26)
  - Road traffic accident [Unknown]
  - Fatigue [Not Recovered/Not Resolved]
  - Confusional state [Unknown]
  - Disorientation [Unknown]
  - Wound haemorrhage [Unknown]
  - Muscle spasms [Unknown]
  - Gait disturbance [Unknown]
  - Haemorrhage [Unknown]
  - Pyrexia [Recovered/Resolved]
  - Dyspnoea [Unknown]
  - Weight decreased [Unknown]
  - Back pain [Not Recovered/Not Resolved]
  - Injury [Not Recovered/Not Resolved]
  - Wound [Unknown]
  - Hypotension [Unknown]
  - Adverse event [Unknown]
  - Nasopharyngitis [Unknown]
  - Fall [Not Recovered/Not Resolved]
  - Wound infection [Not Recovered/Not Resolved]
  - Limb injury [Unknown]
  - Wound complication [Unknown]
  - Contusion [Unknown]
  - Asthenia [Unknown]
  - Back pain [Unknown]
  - Hernia [Not Recovered/Not Resolved]
  - Dizziness [Not Recovered/Not Resolved]

NARRATIVE: CASE EVENT DATE: 20170421
